FAERS Safety Report 17487438 (Version 14)
Quarter: 2021Q1

REPORT INFORMATION
  Report Type: Spontaneous
  Country: US (occurrence: US)
  Receive Date: 20200303
  Receipt Date: 20210201
  Transmission Date: 20210419
  Serious: Yes (Other)
  Sender: FDA-Public Use
  Company Number: US-PFIZER INC-2020093357

PATIENT
  Age: 1 Year
  Sex: Male
  Weight: 10 kg

DRUGS (4)
  1. BENEFIX [Suspect]
     Active Substance: COAGULATION FACTOR IX RECOMBINANT HUMAN\ISOPROPYL ALCOHOL
     Indication: HAEMORRHAGE
     Dosage: 100 IU/KG, AS NEEDED, 1000 UNITS (+5%) = 100 UNITS/KG DAILY X 1 ON DEMAND
  2. BENEFIX [Suspect]
     Active Substance: COAGULATION FACTOR IX RECOMBINANT HUMAN\ISOPROPYL ALCOHOL
     Dosage: 100 IU/KG, AS NEEDED, 1100 UNITS (+5%)= 100 UNITS/KG DAILY X 1 ON DEMAND
  3. BENEFIX [Suspect]
     Active Substance: COAGULATION FACTOR IX RECOMBINANT HUMAN\ISOPROPYL ALCOHOL
     Dosage: 100 IU/KG, AS NEEDED, 1000 UNITS (+5%) = 100 UNITS/KG EVERY OTHER DAY UNTIL HEMATOMA IS FLAT AND DAI
  4. BENEFIX [Suspect]
     Active Substance: COAGULATION FACTOR IX RECOMBINANT HUMAN\ISOPROPYL ALCOHOL
     Dosage: 100 IU/KG, AS NEEDED (1200 UNITS (+5%) = 100 UNITS/KG DAILY)

REACTIONS (2)
  - Haemorrhage [Unknown]
  - Haematoma [Unknown]
